FAERS Safety Report 6219740-7 (Version None)
Quarter: 2009Q2

REPORT INFORMATION
  Report Type: 
  Country: None (occurrence: None)
  Receive Date: 20090609
  Receipt Date: 20090605
  Transmission Date: 20091009
  Serious: Yes (Death, Life-Threatening, Hospitalization, Other)
  Sender: FDA-Public Use
  Company Number: BR-BAYER-BR-2007-027684

PATIENT
  Age: 61 Year
  Sex: Male

DRUGS (8)
  1. BETAFERON [Suspect]
     Indication: AMYOTROPHIC LATERAL SCLEROSIS
     Dosage: TOTAL DAILY DOSE: 9.6 MIU
     Route: 058
     Dates: start: 20081219, end: 20090604
  2. BETAFERON [Suspect]
     Dosage: TOTAL DAILY DOSE: 9.6 MIU
     Route: 058
     Dates: start: 20070101, end: 20081204
  3. BETAFERON [Suspect]
     Dosage: TOTAL DAILY DOSE: 9.6 MIU
     Route: 058
     Dates: start: 20050101, end: 20070721
  4. ICTUS [Concomitant]
     Indication: CARDIAC DISORDER
     Dosage: TOTAL DAILY DOSE: 3.25 MG
     Route: 048
     Dates: start: 19970101
  5. DIGOXIN [Concomitant]
     Indication: CARDIAC DISORDER
     Route: 065
     Dates: start: 19970101
  6. CAPTOPRIL [Concomitant]
     Indication: HYPERTENSION
     Dosage: TOTAL DAILY DOSE: 50 MG  UNIT DOSE: 25 MG
     Route: 048
     Dates: start: 19940101, end: 20090604
  7. FUROSEMIDE [Concomitant]
     Indication: DYSURIA
     Dosage: TOTAL DAILY DOSE: 20 MG
     Route: 048
     Dates: start: 19940101, end: 20090604
  8. CARVEDILOL [Concomitant]
     Indication: HYPERTENSION
     Route: 048
     Dates: start: 20060101, end: 20090604

REACTIONS (9)
  - ANAEMIA POSTOPERATIVE [None]
  - CACHEXIA [None]
  - CHEMICAL POISONING [None]
  - DEPRESSION [None]
  - GASTROINTESTINAL INJURY [None]
  - HEART RATE DECREASED [None]
  - OESOPHAGEAL INJURY [None]
  - SUICIDE ATTEMPT [None]
  - SYNCOPE [None]
